FAERS Safety Report 13606133 (Version 1)
Quarter: 2017Q2

REPORT INFORMATION
  Report Type: Spontaneous
  Country: US (occurrence: US)
  Receive Date: 20170602
  Receipt Date: 20170602
  Transmission Date: 20170830
  Serious: Yes (Hospitalization)
  Sender: FDA-Public Use
  Company Number: None

PATIENT
  Age: 66 Year
  Sex: Male
  Weight: 77.52 kg

DRUGS (2)
  1. 5-FLUOROURACIL (5-FU) [Suspect]
     Active Substance: FLUOROURACIL
     Dates: end: 20170522
  2. CISPLATIN. [Suspect]
     Active Substance: CISPLATIN
     Dates: end: 20170518

REACTIONS (3)
  - Vomiting [None]
  - Nausea [None]
  - Dehydration [None]

NARRATIVE: CASE EVENT DATE: 20170522
